FAERS Safety Report 12100906 (Version 15)
Quarter: 2016Q4

REPORT INFORMATION
  Report Type: Spontaneous
  Country: CA (occurrence: CA)
  Receive Date: 20160222
  Receipt Date: 20161219
  Transmission Date: 20170206
  Serious: Yes (Life-Threatening, Hospitalization, Other)
  Sender: FDA-Public Use
  Company Number: CA-AMGEN-CANSL2016018193

PATIENT
  Age: 76 Year
  Sex: Female

DRUGS (4)
  1. COZAAR [Concomitant]
     Active Substance: LOSARTAN POTASSIUM
     Dosage: 100 MG, UNK
  2. NOVA [Concomitant]
     Dosage: UNK
  3. ARANESP [Suspect]
     Active Substance: DARBEPOETIN ALFA
     Indication: PRODUCT USED FOR UNKNOWN INDICATION
     Dosage: 160 MUG, UNK
     Route: 065
     Dates: start: 201506
  4. PROLIA [Suspect]
     Active Substance: DENOSUMAB
     Indication: PRODUCT USED FOR UNKNOWN INDICATION
     Dosage: UNK
     Route: 065

REACTIONS (35)
  - Ear discomfort [Unknown]
  - Ear haemorrhage [Unknown]
  - Local swelling [Not Recovered/Not Resolved]
  - Dysphonia [Unknown]
  - Dialysis [Not Recovered/Not Resolved]
  - Back injury [Recovered/Resolved]
  - Procedural pain [Not Recovered/Not Resolved]
  - Back pain [Unknown]
  - Gait disturbance [Unknown]
  - Peripheral swelling [Not Recovered/Not Resolved]
  - Overdose [Unknown]
  - Hypertension [Unknown]
  - Unevaluable event [Unknown]
  - Blood pressure abnormal [Not Recovered/Not Resolved]
  - Joint swelling [Not Recovered/Not Resolved]
  - Cardiovascular disorder [Unknown]
  - Stress [Recovered/Resolved]
  - Dyspnoea [Unknown]
  - Dizziness [Unknown]
  - Hypotension [Unknown]
  - Hospitalisation [Unknown]
  - Volume blood increased [Recovered/Resolved]
  - Malaise [Unknown]
  - Mobility decreased [Unknown]
  - Pain in extremity [Not Recovered/Not Resolved]
  - Fall [Unknown]
  - Visual impairment [Unknown]
  - Haemorrhage [Unknown]
  - Musculoskeletal discomfort [Recovered/Resolved]
  - Bone disorder [Unknown]
  - Muscle spasms [Unknown]
  - Cardiomyopathy [Unknown]
  - Feeling abnormal [Unknown]
  - Nervous system disorder [Unknown]
  - Pain [Recovering/Resolving]

NARRATIVE: CASE EVENT DATE: 2015
